APPROVED DRUG PRODUCT: CITALOPRAM HYDROBROMIDE
Active Ingredient: CITALOPRAM HYDROBROMIDE
Strength: EQ 40MG BASE
Dosage Form/Route: TABLET;ORAL
Application: A077031 | Product #003 | TE Code: AB
Applicant: AUROBINDO PHARMA LTD
Approved: Oct 28, 2004 | RLD: No | RS: No | Type: RX